FAERS Safety Report 5353514-4 (Version None)
Quarter: 2007Q2

REPORT INFORMATION
  Report Type: 
  Country: None (occurrence: None)
  Receive Date: 20070612
  Receipt Date: 20070529
  Transmission Date: 20071010
  Serious: Yes (Other)
  Sender: FDA-Public Use
  Company Number: US-BAYER-200711825BCC

PATIENT
  Sex: Male

DRUGS (3)
  1. ALKA SELTZER [Suspect]
     Indication: DYSPEPSIA
     Route: 048
  2. COFFEE [Suspect]
     Indication: DRUG USE FOR UNKNOWN INDICATION
  3. CIGARETTES [Suspect]
     Indication: DRUG USE FOR UNKNOWN INDICATION

REACTIONS (4)
  - ACCIDENT AT WORK [None]
  - CARDIAC DISORDER [None]
  - DYSPEPSIA [None]
  - ILL-DEFINED DISORDER [None]
